FAERS Safety Report 17284541 (Version 1)
Quarter: 2020Q1

REPORT INFORMATION
  Report Type: Spontaneous
  Country: US (occurrence: US)
  Receive Date: 20200117
  Receipt Date: 20200117
  Transmission Date: 20200409
  Serious: No
  Sender: FDA-Public Use
  Company Number: US-JNJFOC-20200103891

PATIENT
  Age: 81 Year
  Sex: Female
  Weight: 90.8 kg

DRUGS (1)
  1. TYLENOL 8 HR ARTHRITIS PAIN [Suspect]
     Active Substance: ACETAMINOPHEN
     Indication: BACK PAIN
     Dosage: TWO TABLETS EVERY 8 HOURS.?POSSIBLY TAKING 2 ADDITIONAL TABLETS WITHIN 8 HOURS OF HER PREVIOUS DOSE.
     Route: 048
     Dates: start: 2015

REACTIONS (1)
  - Extra dose administered [Unknown]

NARRATIVE: CASE EVENT DATE: 20200101
